FAERS Safety Report 7377209-0 (Version None)
Quarter: 2011Q1

REPORT INFORMATION
  Report Type: 
  Country: None (occurrence: None)
  Receive Date: 20110328
  Receipt Date: 20110317
  Transmission Date: 20110831
  Serious: No
  Sender: FDA-Public Use
  Company Number: US-BIOGENIDEC-2011BI010289

PATIENT
  Age: 38 Year
  Sex: Female

DRUGS (2)
  1. AVONEX [Suspect]
     Indication: MULTIPLE SCLEROSIS
     Route: 030
  2. AVONEX [Suspect]
     Route: 030
     Dates: start: 19990625

REACTIONS (6)
  - MULTIPLE SCLEROSIS [None]
  - POLYCYSTIC OVARIES [None]
  - GASTRIC BYPASS [None]
  - TYPE 2 DIABETES MELLITUS [None]
  - CARPAL TUNNEL SYNDROME [None]
  - INFLUENZA LIKE ILLNESS [None]
